FAERS Safety Report 7641703-5 (Version None)
Quarter: 2011Q3

REPORT INFORMATION
  Report Type: 
  Country: None (occurrence: None)
  Receive Date: 20110728
  Receipt Date: 20110722
  Transmission Date: 20111222
  Serious: Yes (Hospitalization)
  Sender: FDA-Public Use
  Company Number: SE-GLAXOSMITHKLINE-B0735508A

PATIENT
  Age: 42 Year
  Sex: Female

DRUGS (1)
  1. LAMICTAL [Suspect]
     Indication: BIPOLAR I DISORDER
     Dosage: 5MG PER DAY
     Route: 048
     Dates: start: 20110601, end: 20110619

REACTIONS (3)
  - MENINGITIS [None]
  - NEUTROPENIA [None]
  - THROMBOCYTOPENIA [None]
